FAERS Safety Report 6803895-7 (Version None)
Quarter: 2010Q2

REPORT INFORMATION
  Report Type: 
  Country: None (occurrence: None)
  Receive Date: 20100628
  Receipt Date: 20100618
  Transmission Date: 20101027
  Serious: Yes (Hospitalization)
  Sender: FDA-Public Use
  Company Number: SE-PFIZER INC-2010076163

PATIENT
  Age: 56 Year
  Sex: Female

DRUGS (3)
  1. SALAZOPYRIN [Suspect]
     Indication: CROHN'S DISEASE
     Dosage: 500 MG, UNK
     Dates: start: 20100101, end: 20100401
  2. TREO [Concomitant]
     Dosage: UNK
  3. AZATIOPRIN [Concomitant]
     Dosage: UNK

REACTIONS (3)
  - ANGIOEDEMA [None]
  - PHARYNGEAL OEDEMA [None]
  - URTICARIA [None]
